FAERS Safety Report 21498904 (Version 2)
Quarter: 2022Q4

REPORT INFORMATION
  Report Type: Spontaneous
  Country: JP (occurrence: JP)
  Receive Date: 20221024
  Receipt Date: 20221109
  Transmission Date: 20230113
  Serious: Yes (Hospitalization)
  Sender: FDA-Public Use
  Company Number: JP-ASTRAZENECA-220059997_070810_P_1

PATIENT
  Age: 22 Month
  Weight: 3 kg

DRUGS (1)
  1. SYNAGIS [Suspect]
     Active Substance: PALIVIZUMAB
     Indication: Trisomy 21
     Dosage: DOSE UNKNOWN?PALIVIZUMAB(GENETICAL RECOMBINATION):100MG

REACTIONS (1)
  - Respiratory syncytial virus infection [Unknown]

NARRATIVE: CASE EVENT DATE: 20180401
